FAERS Safety Report 6967228-8 (Version None)
Quarter: 2010Q3

REPORT INFORMATION
  Report Type: 
  Country: None (occurrence: None)
  Receive Date: 20100907
  Receipt Date: 20100824
  Transmission Date: 20110219
  Serious: Yes (Other)
  Sender: FDA-Public Use
  Company Number: ES-ELI_LILLY_AND_COMPANY-ES201008006970

PATIENT
  Sex: Female
  Weight: 67.8 kg

DRUGS (2)
  1. FORTEO [Suspect]
     Indication: OSTEOPOROSIS
     Dosage: 20 UG, DAILY (1/D)
     Route: 058
     Dates: start: 20100518
  2. ENANTYUM [Concomitant]
     Indication: PAIN
     Dosage: UNK, 1 TABLET EVERY 12 HOURS
     Route: 048

REACTIONS (2)
  - NERVE COMPRESSION [None]
  - SCOLIOSIS [None]
